FAERS Safety Report 6480107-8 (Version None)
Quarter: 2009Q4

REPORT INFORMATION
  Report Type: 
  Country: None (occurrence: None)
  Receive Date: 20091208
  Receipt Date: 20091123
  Transmission Date: 20100525
  Serious: Yes (Hospitalization, Other)
  Sender: FDA-Public Use
  Company Number: PHHY2009GB41513

PATIENT
  Sex: Male

DRUGS (6)
  1. CLOZARIL [Suspect]
     Indication: SCHIZOPHRENIA
     Dosage: 400 MG, QD
     Route: 048
     Dates: start: 20030130
  2. CLOZARIL [Suspect]
     Dosage: 200 MG, QD
  3. CLOZARIL [Suspect]
     Dosage: 100 MG, BID
     Dates: start: 20091023
  4. CLOZARIL [Suspect]
     Dosage: 200 MG, BID
  5. ETHAMBUTOL HYDROCHLORIDE [Concomitant]
  6. PYRIDOXINE [Concomitant]

REACTIONS (13)
  - ANTIPSYCHOTIC DRUG LEVEL INCREASED [None]
  - ANXIETY [None]
  - DRUG INEFFECTIVE [None]
  - EUPHORIC MOOD [None]
  - FATIGUE [None]
  - HALLUCINATION, AUDITORY [None]
  - IRRITABILITY [None]
  - OBSESSIVE-COMPULSIVE DISORDER [None]
  - PLEURAL INFECTION BACTERIAL [None]
  - SLEEP DISORDER [None]
  - STRESS [None]
  - TREATMENT NONCOMPLIANCE [None]
  - TUBERCULOSIS [None]
